FAERS Safety Report 8625009-3 (Version None)
Quarter: 2012Q3

REPORT INFORMATION
  Report Type: 
  Country: None (occurrence: None)
  Receive Date: 20120827
  Receipt Date: 20120820
  Transmission Date: 20120928
  Serious: Yes (Hospitalization)
  Sender: FDA-Public Use
  Company Number: US-BRISTOL-MYERS SQUIBB COMPANY-16881054

PATIENT
  Age: 55 Year
  Sex: Male

DRUGS (8)
  1. ADVIL [Concomitant]
     Dates: start: 20110912
  2. PRILOSEC [Concomitant]
     Dates: start: 20120521
  3. LISINOPRIL [Concomitant]
     Dates: start: 20110628
  4. IPILIMUMAB [Suspect]
     Indication: MALIGNANT MELANOMA
     Dosage: NO OF COURSES: 4
     Route: 042
     Dates: start: 20120604
  5. BMS982470 [Suspect]
     Indication: MALIGNANT MELANOMA
     Dosage: NO OF COURSES: 13
     Route: 042
     Dates: start: 20120514
  6. OXYCODONE HCL [Concomitant]
     Dates: start: 20120730
  7. GABAPENTIN [Concomitant]
     Dates: start: 20120625
  8. METAMUCIL-2 [Concomitant]
     Dates: start: 20120521

REACTIONS (2)
  - DEHYDRATION [None]
  - DIARRHOEA [None]
